FAERS Safety Report 8060712-8 (Version None)
Quarter: 2012Q1

REPORT INFORMATION
  Report Type: 
  Country: None (occurrence: None)
  Receive Date: 20120120
  Receipt Date: 20111116
  Transmission Date: 20120608
  Serious: Yes (Death, Other)
  Sender: FDA-Public Use
  Company Number: PL-ROCHE-1031311

PATIENT
  Age: 75 Year
  Sex: Female

DRUGS (1)
  1. CAPECITABINE [Suspect]
     Indication: NEOPLASM MALIGNANT
     Dates: start: 20101001, end: 20110601

REACTIONS (4)
  - PATHOLOGICAL FRACTURE [None]
  - METASTASES TO BONE [None]
  - PULMONARY EMBOLISM [None]
  - THROMBOPHLEBITIS [None]
